FAERS Safety Report 6539243-X (Version None)
Quarter: 2010Q1

REPORT INFORMATION
  Report Type: 
  Country: None (occurrence: None)
  Receive Date: 20100115
  Receipt Date: 20100104
  Transmission Date: 20100710
  Serious: No
  Sender: FDA-Public Use
  Company Number: US-JNJFOC-20100101320

PATIENT
  Age: 60 Year
  Sex: Female

DRUGS (4)
  1. DURAGESIC-100 [Suspect]
     Indication: OSTEOARTHRITIS
     Route: 062
  2. SOMA [Concomitant]
     Indication: PAIN
     Route: 048
  3. HYDROCODONE [Concomitant]
     Indication: BREAKTHROUGH PAIN
     Route: 048
  4. DIAZEPAM [Concomitant]
     Indication: DRUG USE FOR UNKNOWN INDICATION
     Route: 048

REACTIONS (3)
  - DRUG INEFFECTIVE [None]
  - PRODUCT ADHESION ISSUE [None]
  - WRONG TECHNIQUE IN DRUG USAGE PROCESS [None]
